FAERS Safety Report 5376630-X (Version None)
Quarter: 2007Q2

REPORT INFORMATION
  Report Type: 
  Country: None (occurrence: None)
  Receive Date: 20070629
  Receipt Date: 20070613
  Transmission Date: 20071010
  Serious: Yes (Other)
  Sender: FDA-Public Use
  Company Number: 8023424

PATIENT
  Sex: Male
  Weight: 75 kg

DRUGS (1)
  1. XUSAL [Suspect]
     Dosage: 40 DF ONCE PO
     Route: 048

REACTIONS (3)
  - FATIGUE [None]
  - INCORRECT DOSE ADMINISTERED [None]
  - LOSS OF CONSCIOUSNESS [None]
